FAERS Safety Report 4983747-8 (Version None)
Quarter: 2006Q1

REPORT INFORMATION
  Report Type: 
  Country: None (occurrence: None)
  Receive Date: 20060301
  Receipt Date: 20060104
  Transmission Date: 20060701
  Serious: No
  Sender: FDA-Public Use
  Company Number: S06-USA-00113-01

PATIENT
  Sex: Female

DRUGS (7)
  1. NAMENDA [Suspect]
     Indication: AMNESIA
     Dates: start: 20040101, end: 20040101
  2. ADVAIR DISKUS 100/50 [Concomitant]
  3. ALLEGRA D (FEXOFENADINE/PSEUDOEPHEDRINE) [Concomitant]
  4. NASACORT [Concomitant]
  5. PROVENTIL [Concomitant]
  6. BENICAR [Concomitant]
  7. PREMARIN [Concomitant]

REACTIONS (2)
  - CONFUSIONAL STATE [None]
  - DIZZINESS [None]
